FAERS Safety Report 8288150-3 (Version None)
Quarter: 2012Q2

REPORT INFORMATION
  Report Type: 
  Country: None (occurrence: None)
  Receive Date: 20120416
  Receipt Date: 20110908
  Transmission Date: 20120825
  Serious: Yes (Other)
  Sender: FDA-Public Use
  Company Number: US-ALLERGAN-1111959US

PATIENT
  Age: 3 Year
  Sex: Male

DRUGS (2)
  1. PHENOL [Concomitant]
     Indication: PRODUCT USED FOR UNKNOWN INDICATION
     Dosage: 6 %, SINGLE
     Route: 030
  2. BOTULINUM TOXIN TYPE A [Suspect]
     Indication: LEUKODYSTROPHY
     Dosage: 200 UNITS, SINGLE
     Route: 030

REACTIONS (3)
  - LYMPHOEDEMA [None]
  - BOTULISM [None]
  - HYPOGLYCAEMIA [None]
